FAERS Safety Report 17725259 (Version 1)
Quarter: 2020Q2

REPORT INFORMATION
  Report Type: Spontaneous
  Country: US (occurrence: US)
  Receive Date: 20200429
  Receipt Date: 20200429
  Transmission Date: 20200714
  Serious: No
  Sender: FDA-Public Use
  Company Number: US-PERRIGO-19US011587

PATIENT
  Sex: Male
  Weight: 83.9 kg

DRUGS (4)
  1. ALEVE BACK + BODY PAIN [Suspect]
     Active Substance: NAPROXEN SODIUM
     Indication: BACK PAIN
     Dosage: UNKNOWN, QOD
     Route: 048
     Dates: start: 2018, end: 201907
  2. TRAMADOL. [Concomitant]
     Active Substance: TRAMADOL
     Indication: BACK PAIN
     Dosage: UNK
     Route: 048
  3. NAPROXEN SODIUM-PSEUDOEPHEDRINE HYDROCHLORIDE [Suspect]
     Active Substance: NAPROXEN SODIUM\PSEUDOEPHEDRINE HYDROCHLORIDE
     Indication: SINUS DISORDER
     Dosage: 1 TABLET, QD
     Route: 048
     Dates: start: 2014, end: 201907
  4. LIPID MODIFYING AGENTS [Concomitant]
     Active Substance: UNSPECIFIED INGREDIENT
     Indication: BLOOD CHOLESTEROL INCREASED
     Dosage: UNK
     Route: 065
     Dates: start: 2018

REACTIONS (3)
  - Gastric ulcer [Recovering/Resolving]
  - Incorrect product administration duration [Recovered/Resolved]
  - Gastrointestinal injury [Recovering/Resolving]

NARRATIVE: CASE EVENT DATE: 2014
